FAERS Safety Report 10407009 (Version 1)
Quarter: 2014Q3

REPORT INFORMATION
  Report Type: Spontaneous
  Country: IT (occurrence: IT)
  Receive Date: 20140825
  Receipt Date: 20140825
  Transmission Date: 20150326
  Serious: Yes (Hospitalization)
  Sender: FDA-Public Use
  Company Number: IT-TEVA-503278ISR

PATIENT
  Age: 78 Year
  Sex: Female

DRUGS (8)
  1. CARDURA - 2 MG COMPRESSE [Concomitant]
     Indication: HYPERTENSION
     Dosage: 2 MG
     Route: 048
  2. ZIMOX - 1 G COMPRESSE [Concomitant]
     Indication: PNEUMONITIS
     Dosage: 1 G
     Route: 048
     Dates: start: 20140620, end: 20140624
  3. CEFTRIAXONE. [Concomitant]
     Active Substance: CEFTRIAXONE
     Indication: PNEUMONITIS
     Dosage: 1 G
     Route: 030
     Dates: start: 20140625, end: 20140701
  4. ANTRA - 20 MG CAPSULE RIGIDE GASTRORESISTENTI [Concomitant]
     Indication: PROPHYLAXIS AGAINST GASTROINTESTINAL ULCER
     Dosage: 20 MG. GASTRO-RESISTANT CAPSULE, HARD
     Route: 048
  5. LEVOFLOXACIN [Suspect]
     Active Substance: LEVOFLOXACIN
     Indication: PNEUMONITIS
     Dosage: 500 MILLIGRAM DAILY; 500 MG DAILY
     Route: 048
     Dates: start: 20140702, end: 20140705
  6. IPERTEN - 20 MG COMPRESSE [Concomitant]
     Indication: HYPERTENSION
     Dosage: 20 MG
     Route: 048
  7. PRAZENE - 20 MG COMPRESSE [Concomitant]
     Indication: PRODUCT USED FOR UNKNOWN INDICATION
     Dosage: 40 MG
     Route: 048
  8. RYTMONORM - 150 MG COMPRESSE RIVESTITE [Concomitant]
     Indication: ATRIAL FIBRILLATION
     Dosage: 300 MG
     Route: 048

REACTIONS (2)
  - Malaise [Recovering/Resolving]
  - Diarrhoea [Recovering/Resolving]

NARRATIVE: CASE EVENT DATE: 20140705
